FAERS Safety Report 8078209-8 (Version None)
Quarter: 2012Q1

REPORT INFORMATION
  Report Type: 
  Country: None (occurrence: None)
  Receive Date: 20120127
  Receipt Date: 20110118
  Transmission Date: 20120608
  Serious: No
  Sender: FDA-Public Use
  Company Number: US-ABBOTT-10P-163-0691797-00

PATIENT
  Age: 48 Year
  Sex: Male

DRUGS (1)
  1. HUMIRA [Suspect]
     Indication: CROHN'S DISEASE
     Dates: start: 20091220, end: 20101228

REACTIONS (13)
  - EAR PAIN [None]
  - EAR DISCOMFORT [None]
  - SKIN PAPILLOMA [None]
  - EAR INFECTION [None]
  - HYPERHIDROSIS [None]
  - OTITIS EXTERNA [None]
  - DRUG DOSE OMISSION [None]
  - PAIN IN EXTREMITY [None]
  - EXTERNAL EAR PAIN [None]
  - INSOMNIA [None]
  - OROPHARYNGEAL PAIN [None]
  - HEADACHE [None]
  - LIP DISORDER [None]
